FAERS Safety Report 23211517 (Version 1)
Quarter: 2023Q4

REPORT INFORMATION
  Report Type: Spontaneous
  Country: IL (occurrence: IL)
  Receive Date: 20231121
  Receipt Date: 20231121
  Transmission Date: 20240109
  Serious: Yes (Hospitalization, Other)
  Sender: FDA-Public Use
  Company Number: IL-GLAXOSMITHKLINE-IL2023GSK158197

PATIENT

DRUGS (2)
  1. VENTOLIN [Suspect]
     Active Substance: ALBUTEROL SULFATE
     Indication: Product used for unknown indication
     Dosage: UNK
     Route: 055
  2. OXYGEN [Concomitant]
     Active Substance: OXYGEN
     Indication: Product used for unknown indication
     Dosage: (VIA NASAL CANNULA)

REACTIONS (8)
  - Apathy [Recovering/Resolving]
  - Pallor [Recovering/Resolving]
  - Tachypnoea [Recovering/Resolving]
  - Rales [Recovering/Resolving]
  - Bradycardia [Recovered/Resolved]
  - Sinus arrest [Recovering/Resolving]
  - Sinus arrhythmia [Recovering/Resolving]
  - Cardiac arrest [Unknown]
